FAERS Safety Report 17537562 (Version 1)
Quarter: 2020Q1

REPORT INFORMATION
  Report Type: Spontaneous
  Country: ES (occurrence: ES)
  Receive Date: 20200313
  Receipt Date: 20200313
  Transmission Date: 20200409
  Serious: Yes (Other)
  Sender: FDA-Public Use
  Company Number: ES-ELI_LILLY_AND_COMPANY-ES202003000456

PATIENT
  Age: 83 Year
  Sex: Female

DRUGS (1)
  1. FORSTEO 250UG/ML [Suspect]
     Active Substance: TERIPARATIDE
     Indication: PRODUCT USED FOR UNKNOWN INDICATION
     Dosage: UNK UNK, UNKNOWN
     Route: 065
     Dates: start: 20200224

REACTIONS (6)
  - Vomiting [Unknown]
  - Abdominal pain upper [Unknown]
  - Headache [Unknown]
  - Dizziness [Unknown]
  - Sepsis [Unknown]
  - Dyspepsia [Unknown]

NARRATIVE: CASE EVENT DATE: 20200224
